FAERS Safety Report 6816619-4 (Version None)
Quarter: 2010Q3

REPORT INFORMATION
  Report Type: 
  Country: None (occurrence: None)
  Receive Date: 20100706
  Receipt Date: 20090902
  Transmission Date: 20110219
  Serious: Yes (Hospitalization, Other)
  Sender: FDA-Public Use
  Company Number: US-JNJFOC-20090902010

PATIENT
  Sex: Female
  Weight: 3.96 kg

DRUGS (8)
  1. FENTANYL-100 [Suspect]
     Indication: DRUG EXPOSURE DURING PREGNANCY
     Route: 065
  2. FENTANYL-100 [Suspect]
     Indication: DRUG EXPOSURE VIA BREAST MILK
     Route: 065
  3. FENTANYL CITRATE [Suspect]
     Indication: DRUG EXPOSURE DURING PREGNANCY
     Route: 015
  4. FENTANYL CITRATE [Suspect]
     Route: 015
  5. FENTANYL CITRATE [Suspect]
     Route: 015
  6. SEVOFLURANE [Suspect]
     Indication: DRUG EXPOSURE DURING PREGNANCY
     Route: 015
  7. PROPOFOL [Suspect]
     Indication: DRUG EXPOSURE DURING PREGNANCY
     Route: 015
  8. MIDAZOLAM HCL [Suspect]
     Indication: DRUG EXPOSURE DURING PREGNANCY
     Route: 015

REACTIONS (2)
  - DRUG EXPOSURE VIA BREAST MILK [None]
  - DRUG WITHDRAWAL SYNDROME [None]
